FAERS Safety Report 14934263 (Version 1)
Quarter: 2018Q2

REPORT INFORMATION
  Report Type: Spontaneous
  Country: DE (occurrence: DE)
  Receive Date: 20180524
  Receipt Date: 20180524
  Transmission Date: 20180711
  Serious: Yes (Hospitalization)
  Sender: FDA-Public Use
  Company Number: DE-PFIZER INC-2018206668

PATIENT
  Age: 62 Year
  Sex: Female
  Weight: 60 kg

DRUGS (11)
  1. ADDITIVA MAGNESIUM /00454301/ [Concomitant]
     Dosage: 300 MG, UNK (0-0-2)
     Route: 048
  2. ESOMEPRAZOL HEUMAN [Concomitant]
     Dosage: 20 MG, UNK (1-0-0)
     Route: 048
  3. MCP /00041902/ [Concomitant]
     Active Substance: METOCLOPRAMIDE HYDROCHLORIDE
     Dosage: UNK (DROPS)
     Route: 048
  4. ZOSTEX [Suspect]
     Active Substance: BRIVUDINE
     Dosage: UNK (7 DAYS)
     Route: 048
     Dates: start: 20161223
  5. ASS AL [Concomitant]
     Active Substance: ASPIRIN
     Dosage: 100 MG, UNK (1-0-1)
     Route: 048
     Dates: end: 20161227
  6. METOHEXAL SUCC [Concomitant]
     Active Substance: METOPROLOL SUCCINATE
     Dosage: 47.5 MG, UNK (1/2-0-0)
     Route: 048
  7. METHOTREXATE SODIUM. [Suspect]
     Active Substance: METHOTREXATE SODIUM
     Dosage: 10 MG, WEEKLY
     Route: 048
  8. PRAVASTATIN. [Concomitant]
     Active Substance: PRAVASTATIN
     Dosage: 40 MG, UNK (0-0-1/2)
     Route: 048
  9. FOLIC ACID. [Concomitant]
     Active Substance: FOLIC ACID
     Dosage: 5 MG, 2X/WEEK
     Route: 048
  10. IBUHEXAL /00109201/ [Concomitant]
     Active Substance: IBUPROFEN
     Dosage: 400 MG, UNK
     Route: 048
  11. L-THYROXIN WINTHROP [Concomitant]
     Dosage: 75 UG, UNK (1-0-0)
     Route: 048

REACTIONS (2)
  - Petechiae [Unknown]
  - Thrombocytopenia [Unknown]
